FAERS Safety Report 5941142-9 (Version None)
Quarter: 2008Q4

REPORT INFORMATION
  Report Type: 
  Country: None (occurrence: None)
  Receive Date: 20081104
  Receipt Date: 20081023
  Transmission Date: 20090506
  Serious: Yes (Hospitalization)
  Sender: FDA-Public Use
  Company Number: FR-PFIZER INC-2008090089

PATIENT
  Sex: Female

DRUGS (2)
  1. ZYVOXID TABLET [Suspect]
     Indication: OSTEITIS
     Route: 048
     Dates: start: 20080220, end: 20080331
  2. BACTRIM [Concomitant]
     Dates: start: 20080226

REACTIONS (3)
  - ANAEMIA [None]
  - NEUTROPENIA [None]
  - PLATELET COUNT DECREASED [None]
